FAERS Safety Report 22262549 (Version 13)
Quarter: 2024Q4

REPORT INFORMATION
  Report Type: Spontaneous
  Country: CA (occurrence: CA)
  Receive Date: 20230428
  Receipt Date: 20241227
  Transmission Date: 20250115
  Serious: Yes (Hospitalization, Other)
  Sender: CELLTRION
  Company Number: CA-CELLTRION INC.-2023CA008884

PATIENT

DRUGS (11)
  1. INFLECTRA [Suspect]
     Active Substance: INFLIXIMAB-DYYB
     Indication: Colitis ulcerative
     Dosage: 5 MG/KG, INDUCTION WEEK 0, 2, 6 WEEKS, THEN EVERY 8 WEEKS
     Route: 042
     Dates: start: 20230331, end: 20230331
  2. INFLECTRA [Suspect]
     Active Substance: INFLIXIMAB-DYYB
     Dosage: 10 MG/KG, WEEK 6 THEN EVERY 8 WEEKS
     Route: 042
     Dates: start: 20230503
  3. INFLECTRA [Suspect]
     Active Substance: INFLIXIMAB-DYYB
     Dosage: 10 MG/KG, WEEK 6 THEN EVERY 8 WEEKS
     Route: 042
     Dates: start: 20230626
  4. INFLECTRA [Suspect]
     Active Substance: INFLIXIMAB-DYYB
     Dosage: 1000 MG (10MG/KG), EVERY 4 WEEKS (FIX DOSE 1000MG)
     Route: 042
     Dates: start: 20230724
  5. INFLECTRA [Suspect]
     Active Substance: INFLIXIMAB-DYYB
     Dosage: 1000 MG (10MG/KG), EVERY 4 WEEKS
     Route: 042
     Dates: start: 20240626
  6. INFLECTRA [Suspect]
     Active Substance: INFLIXIMAB-DYYB
     Dosage: 1000 MG, EVERY 4 WEEKS
     Route: 042
     Dates: start: 20240724
  7. INFLECTRA [Suspect]
     Active Substance: INFLIXIMAB-DYYB
     Dosage: 1000 MG, AFTER 5 WEEKS AND 1 DAY, (PRESCRIBED EVERY 4 WEEKS, FIX DOSE 1000 MG)
     Route: 042
     Dates: start: 20240828
  8. INFLECTRA [Suspect]
     Active Substance: INFLIXIMAB-DYYB
     Dosage: 950 MG, EVERY 4 WEEKS (FIX DOSE 1000 MG)
     Route: 042
     Dates: start: 20240925
  9. INFLECTRA [Suspect]
     Active Substance: INFLIXIMAB-DYYB
     Dosage: 10 MG/KG, EVERY 4 WEEKS (FIX DOSE 1000 MG)
     Route: 042
     Dates: start: 20241023
  10. INFLECTRA [Suspect]
     Active Substance: INFLIXIMAB-DYYB
     Dosage: 910 MG, 4 WEEKS (10 MG/KG, EVERY 4 WEEKS, FIX DOSE 1000 MG)
     Route: 042
     Dates: start: 20241120
  11. INFLECTRA [Suspect]
     Active Substance: INFLIXIMAB-DYYB
     Dosage: 880 MG, EVERY 4 WEEKS (10 MG/KG)
     Route: 042
     Dates: start: 20241218

REACTIONS (12)
  - Colitis ulcerative [Recovering/Resolving]
  - Weight decreased [Recovered/Resolved]
  - Condition aggravated [Not Recovered/Not Resolved]
  - Micturition urgency [Recovering/Resolving]
  - Defaecation urgency [Recovering/Resolving]
  - Sleep deficit [Unknown]
  - Memory impairment [Unknown]
  - Feeding disorder [Unknown]
  - Restlessness [Unknown]
  - Drug ineffective [Unknown]
  - Off label use [Unknown]
  - Inappropriate schedule of product administration [Unknown]

NARRATIVE: CASE EVENT DATE: 20230101
